FAERS Safety Report 12953148 (Version 1)
Quarter: 2016Q4

REPORT INFORMATION
  Report Type: Spontaneous
  Country: US (occurrence: US)
  Receive Date: 20161117
  Receipt Date: 20161117
  Transmission Date: 20170207
  Serious: No
  Sender: FDA-Public Use
  Company Number: GXBR2016US003366

PATIENT
  Age: 69 Year
  Sex: Female
  Weight: 88.44 kg

DRUGS (6)
  1. SPIRIVA [Concomitant]
     Active Substance: TIOTROPIUM BROMIDE MONOHYDRATE
     Dosage: UNK DF, UNK
  2. IRBESARTAN. [Concomitant]
     Active Substance: IRBESARTAN
     Dosage: UNK DF, UNK
  3. AMOXICILLIN AND CLAVULANATE POTASSIUM TABLETS USP [Suspect]
     Active Substance: AMOXICILLIN\CLAVULANATE POTASSIUM
     Indication: CYSTITIS
     Dosage: 875 MG, BID
     Route: 048
     Dates: start: 20161030, end: 20161105
  4. CRESTOR [Concomitant]
     Active Substance: ROSUVASTATIN CALCIUM
     Dosage: UNK DF, UNK
  5. EZETIMIBE. [Concomitant]
     Active Substance: EZETIMIBE
     Dosage: UNK DF, UNK
  6. SYNTHROID [Concomitant]
     Active Substance: LEVOTHYROXINE SODIUM

REACTIONS (2)
  - Diarrhoea [Not Recovered/Not Resolved]
  - Rash pruritic [Recovering/Resolving]

NARRATIVE: CASE EVENT DATE: 20161105
